FAERS Safety Report 5188075-6 (Version None)
Quarter: 2006Q4

REPORT INFORMATION
  Report Type: 
  Country: None (occurrence: None)
  Receive Date: 20061221
  Receipt Date: 20061214
  Transmission Date: 20070319
  Serious: Yes (Hospitalization)
  Sender: FDA-Public Use
  Company Number: US-JNJFOC-20061204424

PATIENT
  Sex: Male

DRUGS (1)
  1. REMICADE [Suspect]
     Indication: JUVENILE ARTHRITIS
     Route: 042

REACTIONS (1)
  - VARICELLA [None]
